FAERS Safety Report 10343392 (Version 1)
Quarter: 2014Q3

REPORT INFORMATION
  Report Type: Spontaneous
  Country: IN (occurrence: None)
  Receive Date: 20140723
  Receipt Date: 20140723
  Transmission Date: 20150326
  Serious: Yes (Other)
  Sender: FDA-Public Use
  Company Number: SYM-2014-23148

PATIENT
  Age: 75 Year
  Sex: Male

DRUGS (6)
  1. BUPROPION (BUPROPION) [Suspect]
     Active Substance: BUPROPION
     Indication: DEPRESSION
     Dosage: 1 IN 1 D
  2. LEVODOPA [Concomitant]
     Active Substance: LEVODOPA
  3. CARBIDOPA. [Concomitant]
     Active Substance: CARBIDOPA
  4. AMLODIPINE [Concomitant]
     Active Substance: AMLODIPINE BESYLATE
  5. CLONAZEPAM. [Suspect]
     Active Substance: CLONAZEPAM
     Indication: DEPRESSION
     Dosage: 1 IN 1 D
  6. ATENOLOL. [Concomitant]
     Active Substance: ATENOLOL

REACTIONS (1)
  - Hyponatraemia [None]
